FAERS Safety Report 13753316 (Version 1)
Quarter: 2017Q3

REPORT INFORMATION
  Report Type: Spontaneous
  Country: US (occurrence: US)
  Receive Date: 20170714
  Receipt Date: 20170714
  Transmission Date: 20171127
  Serious: No
  Sender: FDA-Public Use
  Company Number: US-IPSEN BIOPHARMACEUTICALS, INC.-2013-1464

PATIENT
  Age: 17 Year
  Sex: Male
  Weight: 45.5 kg

DRUGS (2)
  1. INCRELEX [Suspect]
     Active Substance: MECASERMIN
     Indication: BODY HEIGHT BELOW NORMAL
     Route: 058
     Dates: start: 20110223
  2. INCRELEX [Suspect]
     Active Substance: MECASERMIN
     Indication: PRODUCT USE IN UNAPPROVED INDICATION
     Route: 058
     Dates: start: 20101119, end: 20110217

REACTIONS (3)
  - Nausea [Unknown]
  - Drug ineffective [Unknown]
  - Hypoglycaemia [None]

NARRATIVE: CASE EVENT DATE: 201107
